FAERS Safety Report 9496527 (Version 3)
Quarter: 2013Q4

REPORT INFORMATION
  Report Type: Spontaneous
  Country: GB (occurrence: GB)
  Receive Date: 20130904
  Receipt Date: 20131029
  Transmission Date: 20140711
  Serious: Yes (Other)
  Sender: FDA-Public Use
  Company Number: PHFR2013GB005010

PATIENT
  Sex: Male

DRUGS (7)
  1. CLOZARIL [Suspect]
     Indication: SCHIZOPHRENIA
     Dosage: UNK
     Route: 048
     Dates: start: 20130225
  2. CLOZARIL [Suspect]
     Dosage: 600 MG, QD
     Route: 048
  3. AMISULPRIDE [Concomitant]
     Indication: PSYCHOTIC DISORDER
     Dosage: 250 MG, QD
     Route: 048
  4. AMISULPRIDE [Concomitant]
     Dosage: 200 MG, QD
     Route: 048
  5. FERROUS SULPHATE [Concomitant]
     Indication: SERUM FERRITIN DECREASED
     Dosage: 400 MG, QD
     Route: 048
  6. OMEPRAZOLE [Concomitant]
     Indication: DYSPEPSIA
     Dosage: 40 MG, QD
     Route: 048
  7. HYOSCINE HYDROBROMIDE [Concomitant]
     Indication: SALIVARY HYPERSECRETION
     Dosage: 300 MG, QD
     Route: 048

REACTIONS (3)
  - Drug abuse [Recovered/Resolved]
  - Electrocardiogram QT prolonged [Recovering/Resolving]
  - Neutrophil count increased [Unknown]
